FAERS Safety Report 6821351-7 (Version None)
Quarter: 2010Q3

REPORT INFORMATION
  Report Type: 
  Country: None (occurrence: None)
  Receive Date: 20100707
  Receipt Date: 20080707
  Transmission Date: 20110219
  Serious: No
  Sender: FDA-Public Use
  Company Number: US-PFIZER INC-2008057219

PATIENT
  Sex: Female

DRUGS (2)
  1. ZOLOFT [Suspect]
     Dates: start: 20080101, end: 20080101
  2. ANTIDEPRESSANTS [Suspect]
     Dates: start: 20080101, end: 20080101

REACTIONS (9)
  - AGITATION [None]
  - ANXIETY [None]
  - DIZZINESS [None]
  - FEELING ABNORMAL [None]
  - FEELING JITTERY [None]
  - MUSCLE TWITCHING [None]
  - PANIC ATTACK [None]
  - PANIC REACTION [None]
  - RESTLESSNESS [None]
